FAERS Safety Report 23341343 (Version 1)
Quarter: 2023Q4

REPORT INFORMATION
  Report Type: Spontaneous
  Country: TR (occurrence: TR)
  Receive Date: 20231227
  Receipt Date: 20231227
  Transmission Date: 20240110
  Serious: Yes (Other)
  Sender: FDA-Public Use
  Company Number: TR-ORGANON-O2312TUR001343

PATIENT
  Age: 55 Year
  Sex: Female

DRUGS (1)
  1. FOSAVANCE [Suspect]
     Active Substance: ALENDRONATE SODIUM\CHOLECALCIFEROL
     Indication: Osteopenia
     Dosage: 70MG/2800IU IN THE MORNING AND EVENING
     Route: 048
     Dates: end: 20231219

REACTIONS (9)
  - Myocardial infarction [Recovered/Resolved]
  - Fear [Recovered/Resolved]
  - Nausea [Recovered/Resolved]
  - Vomiting [Recovered/Resolved]
  - Malaise [Unknown]
  - Dysphagia [Unknown]
  - Abdominal distension [Recovered/Resolved]
  - Oedema peripheral [Unknown]
  - Swelling [Recovered/Resolved]
